FAERS Safety Report 15858201 (Version 1)
Quarter: 2019Q1

REPORT INFORMATION
  Report Type: Spontaneous
  Country: US (occurrence: US)
  Receive Date: 20190123
  Receipt Date: 20190123
  Transmission Date: 20190417
  Serious: Yes (Hospitalization, Other)
  Sender: FDA-Public Use
  Company Number: US-JNJFOC-20190106057

PATIENT
  Age: 44 Year
  Sex: Female

DRUGS (1)
  1. HALOPERIDOL. [Suspect]
     Active Substance: HALOPERIDOL
     Indication: SCHIZOPHRENIA
     Route: 065

REACTIONS (7)
  - Urinary incontinence [Unknown]
  - Resting tremor [Recovering/Resolving]
  - Drooling [Unknown]
  - Anal incontinence [Unknown]
  - Glabellar reflex abnormal [Unknown]
  - Seborrhoeic dermatitis [Unknown]
  - Catatonia [Unknown]
